FAERS Safety Report 6438296-7 (Version None)
Quarter: 2009Q4

REPORT INFORMATION
  Report Type: 
  Country: None (occurrence: None)
  Receive Date: 20091112
  Receipt Date: 20091104
  Transmission Date: 20100525
  Serious: Yes (Other)
  Sender: FDA-Public Use
  Company Number: US-JNJFOC-20091101835

PATIENT
  Age: 63 Year
  Sex: Female
  Weight: 65.77 kg

DRUGS (5)
  1. EXTRA STRENGTH TYLENOL [Suspect]
     Route: 048
  2. EXTRA STRENGTH TYLENOL [Suspect]
     Indication: PROCEDURAL PAIN
     Dosage: 1000 MG FOUR TIMES IN 3 DAYS
     Route: 048
  3. ASMANEX TWISTHALER [Concomitant]
     Indication: ASTHMA
     Dosage: ^220 MG^
  4. XOPENEX [Concomitant]
     Indication: ASTHMA
     Dosage: ^45MG^
  5. SEREVENT [Concomitant]
     Indication: ASTHMA

REACTIONS (1)
  - WHEEZING [None]
